FAERS Safety Report 18492204 (Version 13)
Quarter: 2022Q1

REPORT INFORMATION
  Report Type: Report from Study
  Country: US (occurrence: US)
  Receive Date: 20201111
  Receipt Date: 20220329
  Transmission Date: 20220423
  Serious: Yes (Hospitalization, Other)
  Sender: FDA-Public Use
  Company Number: NVSC2020US295931

PATIENT
  Sex: Female

DRUGS (1)
  1. ADAKVEO [Suspect]
     Active Substance: CRIZANLIZUMAB-TMCA
     Indication: Sickle cell disease
     Dosage: QMO, INTO BLOODSTREAM VIA VEIN
     Route: 042

REACTIONS (12)
  - Sickle cell anaemia with crisis [Unknown]
  - Pneumonia [Unknown]
  - Acute chest syndrome [Unknown]
  - Bone pain [Unknown]
  - Purulence [Unknown]
  - Lethargy [Unknown]
  - Headache [Unknown]
  - Pain [Unknown]
  - Nausea [Unknown]
  - Fatigue [Unknown]
  - Haemoglobin decreased [Unknown]
  - Iron deficiency [Unknown]
